FAERS Safety Report 11154945 (Version 1)
Quarter: 2015Q2

REPORT INFORMATION
  Report Type: Spontaneous
  Country: RU (occurrence: None)
  Receive Date: 20150529
  Receipt Date: 20150529
  Transmission Date: 20150821
  Serious: Yes (Other)
  Sender: FDA-Public Use
  Company Number: RU2015GSK004378

PATIENT
  Sex: Male

DRUGS (2)
  1. COMBIVIR [Suspect]
     Active Substance: LAMIVUDINE\ZIDOVUDINE
     Indication: HIV INFECTION
     Dates: start: 201310
  2. EFAVIRENZ [Suspect]
     Active Substance: EFAVIRENZ

REACTIONS (3)
  - Viral load increased [None]
  - Scleroderma [None]
  - Abdominal pain [None]

NARRATIVE: CASE EVENT DATE: 2015
